FAERS Safety Report 5419185-3 (Version None)
Quarter: 2007Q3

REPORT INFORMATION
  Report Type: 
  Country: None (occurrence: None)
  Receive Date: 20070817
  Receipt Date: 20070817
  Transmission Date: 20080115
  Serious: No
  Sender: FDA-Public Use
  Company Number: None

PATIENT
  Age: 49 Year
  Sex: Female

DRUGS (1)
  1. BETASERON [Suspect]
     Indication: MULTIPLE SCLEROSIS
     Dosage: 0.25MG EVERY OTHER DAY SQ
     Route: 058
     Dates: start: 20070515, end: 20070601

REACTIONS (2)
  - INJECTION SITE PAIN [None]
  - TREATMENT NONCOMPLIANCE [None]
